FAERS Safety Report 4273780-6 (Version None)
Quarter: 2004Q1

REPORT INFORMATION
  Report Type: 
  Country: None (occurrence: None)
  Receive Date: 20040114
  Receipt Date: 20031230
  Transmission Date: 20041129
  Serious: Yes (Hospitalization)
  Sender: FDA-Public Use
  Company Number: 03-0075

PATIENT
  Age: 27 Year
  Sex: Female

DRUGS (2)
  1. PONSTEL [Suspect]
     Indication: ANALGESIC EFFECT
     Dosage: 250 MG, ONCE, PO
     Route: 048
     Dates: start: 20031110
  2. ZITHROMAX [Suspect]
     Indication: INFECTION PROPHYLAXIS
     Dosage: 250MG, DAILY, PO
     Route: 048
     Dates: start: 20031110

REACTIONS (6)
  - ALANINE AMINOTRANSFERASE INCREASED [None]
  - ASPARTATE AMINOTRANSFERASE INCREASED [None]
  - BLOOD PRESSURE DECREASED [None]
  - DRUG HYPERSENSITIVITY [None]
  - GAMMA-GLUTAMYLTRANSFERASE INCREASED [None]
  - NEUTROPHIL COUNT INCREASED [None]
